FAERS Safety Report 23808101 (Version 3)
Quarter: 2024Q2

REPORT INFORMATION
  Report Type: Spontaneous
  Country: US (occurrence: US)
  Receive Date: 20240502
  Receipt Date: 20240606
  Transmission Date: 20240716
  Serious: Yes (Hospitalization)
  Sender: FDA-Public Use
  Company Number: US-PFIZER INC-PV202400056841

PATIENT

DRUGS (1)
  1. SOLU-MEDROL [Suspect]
     Active Substance: METHYLPREDNISOLONE SODIUM SUCCINATE
     Dosage: UNK
     Route: 030
     Dates: start: 202404

REACTIONS (3)
  - Syncope [Unknown]
  - Hypotension [Unknown]
  - Bradycardia [Unknown]

NARRATIVE: CASE EVENT DATE: 20240401
